FAERS Safety Report 7446266-5 (Version None)
Quarter: 2011Q2

REPORT INFORMATION
  Report Type: 
  Country: None (occurrence: None)
  Receive Date: 20110429
  Receipt Date: 20100607
  Transmission Date: 20111010
  Serious: No
  Sender: FDA-Public Use
  Company Number: US-ASTRAZENECA-2010SE26218

PATIENT
  Sex: Female

DRUGS (1)
  1. NEXIUM [Suspect]
     Route: 048

REACTIONS (6)
  - MALAISE [None]
  - APHAGIA [None]
  - GASTRIC DISORDER [None]
  - COLITIS ULCERATIVE [None]
  - VOMITING [None]
  - DRUG DOSE OMISSION [None]
